FAERS Safety Report 15159680 (Version 2)
Quarter: 2018Q3

REPORT INFORMATION
  Report Type: Spontaneous
  Country: SE (occurrence: SE)
  Receive Date: 20180718
  Receipt Date: 20180828
  Transmission Date: 20181010
  Serious: Yes (Other)
  Sender: FDA-Public Use
  Company Number: SE-PFIZER INC-2018284889

PATIENT
  Sex: Male

DRUGS (2)
  1. NARDIL [Suspect]
     Active Substance: PHENELZINE SULFATE
     Indication: PANIC DISORDER
     Dosage: UNK
     Dates: start: 2017
  2. NARDIL [Suspect]
     Active Substance: PHENELZINE SULFATE
     Indication: GENERALISED ANXIETY DISORDER

REACTIONS (4)
  - Fall [Unknown]
  - Dizziness [Unknown]
  - Syncope [Unknown]
  - Weight increased [Unknown]
